FAERS Safety Report 5420159-7 (Version None)
Quarter: 2007Q3

REPORT INFORMATION
  Report Type: 
  Country: None (occurrence: None)
  Receive Date: 20070820
  Receipt Date: 20070807
  Transmission Date: 20080115
  Serious: No
  Sender: FDA-Public Use
  Company Number: US-BOEHRINGER INGELHEIM PHARMACEUTICALS, INC.-2007-BP-18770BP

PATIENT
  Sex: Male

DRUGS (2)
  1. MICARDIS [Suspect]
     Dates: start: 20060101
  2. TOPAMAX [Concomitant]

REACTIONS (1)
  - ANGIOEDEMA [None]
